FAERS Safety Report 8721659 (Version 2)
Quarter: 2012Q4

REPORT INFORMATION
  Report Type: 
  Country: US (occurrence: US)
  Receive Date: 20120814
  Receipt Date: 20121126
  Transmission Date: 20130627
  Serious: Yes (Hospitalization)
  Sender: FDA-Public Use
  Company Number: US-BAYER-2012-081276

PATIENT
  Age: 17 Year
  Sex: Female

DRUGS (3)
  1. YAZ [Suspect]
     Indication: ACNE
     Dosage: UNK
     Dates: start: 20090420, end: 201007
  2. PERCOCET [Concomitant]
  3. COLACE [Concomitant]

REACTIONS (11)
  - Cholecystitis chronic [None]
  - Pancreatitis [Recovered/Resolved]
  - Biliary dilatation [None]
  - Injury [None]
  - Pain [None]
  - Gallbladder disorder [None]
  - Abdominal pain upper [None]
  - Nausea [None]
  - Vomiting [None]
  - Swelling [Recovered/Resolved]
  - Off label use [None]
